FAERS Safety Report 17785333 (Version 6)
Quarter: 2021Q3

REPORT INFORMATION
  Report Type: Report from Study
  Country: AU (occurrence: AU)
  Receive Date: 20200513
  Receipt Date: 20210902
  Transmission Date: 20211014
  Serious: Yes (Hospitalization, Other)
  Sender: FDA-Public Use
  Company Number: NVSC2020AU125780

PATIENT
  Age: 57 Year
  Sex: Female
  Weight: 78.9 kg

DRUGS (6)
  1. ABL001 [Suspect]
     Active Substance: ASCIMINIB
     Indication: CHRONIC MYELOID LEUKAEMIA
     Dosage: 40 MG, BID
     Route: 048
     Dates: start: 20150818, end: 20200504
  2. ABL001 [Suspect]
     Active Substance: ASCIMINIB
     Dosage: UNK
     Route: 048
     Dates: start: 20200505, end: 20200519
  3. METOPROLOL. [Suspect]
     Active Substance: METOPROLOL
     Indication: ATRIAL FIBRILLATION
     Dosage: 25 MG, BID
     Route: 048
     Dates: start: 20170715, end: 20200504
  4. ABL001 [Suspect]
     Active Substance: ASCIMINIB
     Dosage: UNK
     Route: 048
     Dates: start: 20200520
  5. NILOTINIB [Suspect]
     Active Substance: NILOTINIB
     Indication: CHRONIC MYELOID LEUKAEMIA
     Dosage: 300 MG, BID
     Route: 048
     Dates: start: 20150818, end: 20171023
  6. TERBINAFINE. [Suspect]
     Active Substance: TERBINAFINE
     Indication: NAIL INFECTION
     Dosage: 250 MG, OD
     Route: 048
     Dates: start: 20200323

REACTIONS (2)
  - Abdominal pain upper [Recovered/Resolved]
  - Sinus node dysfunction [Recovering/Resolving]

NARRATIVE: CASE EVENT DATE: 20200501
